FAERS Safety Report 18024430 (Version 1)
Quarter: 2020Q3

REPORT INFORMATION
  Report Type: Spontaneous
  Country: US (occurrence: US)
  Receive Date: 20200714
  Receipt Date: 20200714
  Transmission Date: 20201103
  Serious: Yes (Hospitalization)
  Sender: FDA-Public Use
  Company Number: None

PATIENT
  Age: 59 Year
  Sex: Female
  Weight: 87.57 kg

DRUGS (19)
  1. OPDIVO [Suspect]
     Active Substance: NIVOLUMAB
     Indication: RENAL CELL CARCINOMA
     Route: 042
     Dates: start: 20190708, end: 20200210
  2. ASCORBIC ACID (VITAMIN C( ER [Concomitant]
     Dates: start: 20090101
  3. BENZONATATE. [Concomitant]
     Active Substance: BENZONATATE
     Dates: start: 20200201, end: 20200301
  4. PROCHLORPERAZINE MALEATE. [Concomitant]
     Active Substance: PROCHLORPERAZINE MALEATE
     Dates: start: 20191104
  5. CALCIUM CITRATE [Concomitant]
     Active Substance: CALCIUM CITRATE
     Dates: start: 20090101
  6. VITAMIN D3 [Concomitant]
     Active Substance: CHOLECALCIFEROL
     Dates: start: 20090101
  7. METROGEL?VAGINAL .75% [Concomitant]
     Dates: start: 20191130, end: 20191204
  8. ZINC. [Concomitant]
     Active Substance: ZINC
     Dates: start: 20090101
  9. VITAMIN K2 [Concomitant]
     Active Substance: MENAQUINONE 6
     Dates: start: 20090101
  10. PRIMAL DEFENSE ULTRA PROBIOTIC [Concomitant]
     Dates: start: 20090101
  11. VITAMIN E [Concomitant]
     Active Substance: .ALPHA.-TOCOPHEROL
     Dates: start: 20090101
  12. FLUOXETINE [Concomitant]
     Active Substance: FLUOXETINE HYDROCHLORIDE
     Dates: start: 20050101
  13. IRON HEME POLYPEP?FOLIC ACID [Concomitant]
     Dates: start: 20090101
  14. LORAZEPAM. [Concomitant]
     Active Substance: LORAZEPAM
     Dates: start: 20180707
  15. MULTIVITAMIN [Concomitant]
     Active Substance: VITAMINS
     Dates: start: 20090101
  16. VITAMIN A [Concomitant]
     Active Substance: VITAMIN A
     Dates: start: 20090101
  17. MAGNESIUM OXIDE. [Concomitant]
     Active Substance: MAGNESIUM OXIDE
     Dates: start: 20090101
  18. MAGNESIUM CITRATE. [Concomitant]
     Active Substance: MAGNESIUM CITRATE
     Dates: start: 20090101
  19. VITAMIN K [Concomitant]
     Active Substance: PHYTONADIONE
     Dates: start: 20090101

REACTIONS (6)
  - Femur fracture [None]
  - Haematocrit decreased [None]
  - Pathological fracture [None]
  - Hypotension [None]
  - Haematoma muscle [None]
  - Extravasation [None]

NARRATIVE: CASE EVENT DATE: 20200710
